FAERS Safety Report 24624507 (Version 1)
Quarter: 2024Q4

REPORT INFORMATION
  Report Type: Spontaneous
  Country: AT (occurrence: AT)
  Receive Date: 20241115
  Receipt Date: 20241115
  Transmission Date: 20250115
  Serious: Yes (Other)
  Sender: VELOXIS PHARMACEUTICALS
  Company Number: AT-VELOXIS PHARMACEUTICALS, INC.-2024-VEL-00606

PATIENT

DRUGS (8)
  1. ENVARSUS XR [Suspect]
     Active Substance: TACROLIMUS
     Indication: Immunosuppressant drug therapy
     Dosage: 0.11-0.13 MG/KG, INITIATED WITHIN 24-72 H AFTER SURGERY
  2. ENVARSUS XR [Suspect]
     Active Substance: TACROLIMUS
     Dosage: ADJUSTED TO ACHIEVE TARGET TROUGH SERUM CONCENTRATIONS OF 5-10 NG/ML
  3. MYCOPHENOLATE MOFETIL [Suspect]
     Active Substance: MYCOPHENOLATE MOFETIL
     Indication: Immunosuppressant drug therapy
     Dosage: 1 GRAM, BID
  4. METHYLPREDNISOLONE [Suspect]
     Active Substance: METHYLPREDNISOLONE
     Indication: Immunosuppressant drug therapy
     Dosage: 500 MG ON POD 0
  5. METHYLPREDNISOLONE [Suspect]
     Active Substance: METHYLPREDNISOLONE
     Dosage: 160 MG ADMINISTERED ON POD 1
  6. METHYLPREDNISOLONE [Suspect]
     Active Substance: METHYLPREDNISOLONE
     Dosage: 80 MG ON POD 2
  7. METHYLPREDNISOLONE [Suspect]
     Active Substance: METHYLPREDNISOLONE
     Dosage: 40 MG FROM POD 3 ONWARD
  8. METHYLPREDNISOLONE [Suspect]
     Active Substance: METHYLPREDNISOLONE
     Dosage: WEANED OFF UNTIL POD 60

REACTIONS (1)
  - Liver transplant rejection [Unknown]
